FAERS Safety Report 5465393-5 (Version None)
Quarter: 2007Q3

REPORT INFORMATION
  Report Type: 
  Country: None (occurrence: None)
  Receive Date: 20070920
  Receipt Date: 20070920
  Transmission Date: 20080115
  Serious: No
  Sender: FDA-Public Use
  Company Number: None

PATIENT
  Age: 69 Year
  Sex: Female
  Weight: 53.5244 kg

DRUGS (3)
  1. BONIVA [Suspect]
     Indication: OSTEOPENIA
     Dosage: 1 TABLET BY MOUTH ONCE MONTHLY
     Route: 048
     Dates: start: 20070805
  2. MENEST [Concomitant]
  3. PROMETRIUM [Concomitant]

REACTIONS (4)
  - BONE PAIN [None]
  - FACIAL PAIN [None]
  - HEADACHE [None]
  - NAUSEA [None]
